FAERS Safety Report 10278658 (Version 2)
Quarter: 2014Q3

REPORT INFORMATION
  Report Type: Spontaneous
  Country: DE (occurrence: DE)
  Receive Date: 20140704
  Receipt Date: 20140913
  Transmission Date: 20150326
  Serious: Yes (Other)
  Sender: FDA-Public Use
  Company Number: DE-ABBVIE-14P-062-1254469-00

PATIENT
  Age: 73 Year
  Sex: Female
  Weight: 64 kg

DRUGS (1)
  1. HUMIRA [Suspect]
     Active Substance: ADALIMUMAB
     Indication: RHEUMATOID ARTHRITIS
     Route: 058
     Dates: start: 20120306

REACTIONS (1)
  - Renal failure chronic [Not Recovered/Not Resolved]

NARRATIVE: CASE EVENT DATE: 20130926
